FAERS Safety Report 9705408 (Version 2)
Quarter: 2014Q1

REPORT INFORMATION
  Report Type: Spontaneous
  Country: DE (occurrence: DE)
  Receive Date: 20131122
  Receipt Date: 20140117
  Transmission Date: 20141002
  Serious: Yes (Hospitalization)
  Sender: FDA-Public Use
  Company Number: DE-TEVA-444338GER

PATIENT
  Age: 44 Year
  Sex: Female

DRUGS (2)
  1. PENTOXIFYLLIN 400 MG [Suspect]
     Indication: SUDDEN HEARING LOSS
     Dosage: 800 MILLIGRAM DAILY;
     Dates: start: 20131025, end: 20131104
  2. ASS 100 MG [Suspect]
     Dosage: 100 MILLIGRAM DAILY;

REACTIONS (1)
  - Menorrhagia [Recovered/Resolved]
